FAERS Safety Report 10901345 (Version 1)
Quarter: 2015Q1

REPORT INFORMATION
  Report Type: Spontaneous
  Country: US (occurrence: None)
  Receive Date: 20150303
  Receipt Date: 20150303
  Transmission Date: 20150721
  Serious: Yes (Other)
  Sender: FDA-Public Use
  Company Number: HA15-049-AE

PATIENT
  Age: 65 Year
  Sex: Female

DRUGS (1)
  1. TRAMADOL HCL [Suspect]
     Active Substance: TRAMADOL HYDROCHLORIDE
     Indication: PAIN
     Dosage: 1 TABLET, BID, ORAL
     Route: 048
     Dates: start: 20150115, end: 20150215

REACTIONS (3)
  - Swelling face [None]
  - Hypoaesthesia [None]
  - Drug ineffective [None]

NARRATIVE: CASE EVENT DATE: 20150115
